FAERS Safety Report 12666928 (Version 1)
Quarter: 2016Q3

REPORT INFORMATION
  Report Type: Spontaneous
  Country: US (occurrence: None)
  Receive Date: 20160818
  Receipt Date: 20160818
  Transmission Date: 20161109
  Serious: Yes (Other)
  Sender: FDA-Public Use
  Company Number: None

PATIENT
  Age: 71 Year
  Sex: Male
  Weight: 100.1 kg

DRUGS (3)
  1. ORENCIA [Suspect]
     Active Substance: ABATACEPT
     Indication: RHEUMATOID ARTHRITIS
  2. BLOOD PRESSURE MEDICINES [Concomitant]
     Active Substance: UNSPECIFIED INGREDIENT
  3. COUMADIN [Concomitant]
     Active Substance: WARFARIN SODIUM

REACTIONS (6)
  - Abnormal behaviour [None]
  - Drooling [None]
  - Language disorder [None]
  - Sexually inappropriate behaviour [None]
  - Flat affect [None]
  - Speech disorder [None]

NARRATIVE: CASE EVENT DATE: 20160816
